FAERS Safety Report 16422231 (Version 3)
Quarter: 2019Q2

REPORT INFORMATION
  Report Type: Spontaneous
  Country: US (occurrence: US)
  Receive Date: 20190612
  Receipt Date: 20190625
  Transmission Date: 20190711
  Serious: Yes (Other)
  Sender: FDA-Public Use
  Company Number: US-ASTRAZENECA-2018SF26502

PATIENT
  Age: 934 Month
  Sex: Male
  Weight: 73.3 kg

DRUGS (28)
  1. PRILOSEC OTC [Suspect]
     Active Substance: OMEPRAZOLE MAGNESIUM
     Route: 048
     Dates: start: 20040201, end: 20151231
  2. TYLENOL [Concomitant]
     Active Substance: ACETAMINOPHEN
  3. GLIPIZIDE. [Concomitant]
     Active Substance: GLIPIZIDE
  4. NEXIUM [Suspect]
     Active Substance: ESOMEPRAZOLE MAGNESIUM
     Route: 048
     Dates: start: 20040201, end: 20151231
  5. AMIODARONE HYDROCHLORIDE. [Concomitant]
     Active Substance: AMIODARONE HYDROCHLORIDE
  6. ASPIRIN. [Concomitant]
     Active Substance: ASPIRIN
  7. VANCOMYCIN [Concomitant]
     Active Substance: VANCOMYCIN
  8. SIMVASTATIN. [Concomitant]
     Active Substance: SIMVASTATIN
  9. PRILOSEC [Suspect]
     Active Substance: OMEPRAZOLE MAGNESIUM
     Route: 048
     Dates: start: 20040201, end: 20151231
  10. PRILOSEC OTC [Suspect]
     Active Substance: OMEPRAZOLE MAGNESIUM
     Route: 048
     Dates: start: 200402, end: 201601
  11. CALCITRIOL. [Concomitant]
     Active Substance: CALCITRIOL
  12. ALLOPURINOL. [Concomitant]
     Active Substance: ALLOPURINOL
  13. LOSARTAN. [Concomitant]
     Active Substance: LOSARTAN
  14. ASPIRIN. [Concomitant]
     Active Substance: ASPIRIN
  15. GLIPIZIDE. [Concomitant]
     Active Substance: GLIPIZIDE
  16. ONDANSETRON [Concomitant]
     Active Substance: ONDANSETRON
  17. RENVELA [Concomitant]
     Active Substance: SEVELAMER CARBONATE
  18. NEXIUM [Suspect]
     Active Substance: ESOMEPRAZOLE MAGNESIUM
     Route: 048
     Dates: start: 200402, end: 201601
  19. PRILOSEC [Suspect]
     Active Substance: OMEPRAZOLE MAGNESIUM
     Route: 048
     Dates: start: 200402, end: 201601
  20. PREVACID [Suspect]
     Active Substance: LANSOPRAZOLE
     Route: 065
     Dates: start: 200402, end: 201601
  21. PREVACID [Suspect]
     Active Substance: LANSOPRAZOLE
     Route: 065
     Dates: start: 200402, end: 20151231
  22. LOSARTAN. [Concomitant]
     Active Substance: LOSARTAN
  23. SIMVASTATIN. [Concomitant]
     Active Substance: SIMVASTATIN
  24. AMLODIPINE [Concomitant]
     Active Substance: AMLODIPINE BESYLATE
  25. HYDROCHLOROTHIAZIDE. [Concomitant]
     Active Substance: HYDROCHLOROTHIAZIDE
  26. FAMOTIDINE. [Concomitant]
     Active Substance: FAMOTIDINE
  27. METOPROLOL SUCCINATE. [Concomitant]
     Active Substance: METOPROLOL SUCCINATE
  28. CASODEX [Concomitant]
     Active Substance: BICALUTAMIDE

REACTIONS (8)
  - Renal injury [Unknown]
  - Chronic kidney disease [Unknown]
  - Renal failure [Unknown]
  - Nephrogenic anaemia [Unknown]
  - Dyspepsia [Unknown]
  - End stage renal disease [Unknown]
  - Acute kidney injury [Unknown]
  - Tubulointerstitial nephritis [Unknown]

NARRATIVE: CASE EVENT DATE: 201210
